FAERS Safety Report 11008697 (Version 1)
Quarter: 2015Q2

REPORT INFORMATION
  Report Type: Spontaneous
  Country: US (occurrence: None)
  Receive Date: 20150408
  Receipt Date: 20150408
  Transmission Date: 20150821
  Serious: Yes (Hospitalization)
  Sender: FDA-Public Use
  Company Number: DEP_02625_2015

PATIENT
  Sex: Female
  Weight: 102.06 kg

DRUGS (3)
  1. GRALISE [Suspect]
     Active Substance: GABAPENTIN
     Indication: OFF LABEL USE
     Dosage: TITRATING UP TO 1800 MG, ONCE DAILY, ^AFTER DINNER^ ORAL
     Route: 048
     Dates: start: 20140901
  2. TRIBENZOR [Concomitant]
     Active Substance: AMLODIPINE BESYLATE\HYDROCHLOROTHIAZIDE\OLMESARTAN MEDOXOMIL
  3. GRALISE [Suspect]
     Active Substance: GABAPENTIN
     Indication: TRIGEMINAL NEURALGIA
     Dosage: TITRATING UP TO 1800 MG, ONCE DAILY, ^AFTER DINNER^ ORAL
     Route: 048
     Dates: start: 20140901

REACTIONS (6)
  - Headache [None]
  - General physical health deterioration [None]
  - Malaise [None]
  - Blood sodium decreased [None]
  - Blood pressure increased [None]
  - Vomiting [None]

NARRATIVE: CASE EVENT DATE: 20140901
